FAERS Safety Report 4973449-6 (Version None)
Quarter: 2006Q2

REPORT INFORMATION
  Report Type: 
  Country: None (occurrence: None)
  Receive Date: 20060407
  Receipt Date: 20060327
  Transmission Date: 20061013
  Serious: Yes (Death)
  Sender: FDA-Public Use
  Company Number: 2006042813

PATIENT
  Age: 63 Year
  Sex: Male

DRUGS (6)
  1. FRAGMIN [Suspect]
     Indication: THROMBOSIS PROPHYLAXIS
     Dosage: 5000 I.U. (5000 I.U., 1 IN 1 D), SUBCUTANEOUS; SEE IMAGE
     Route: 058
     Dates: start: 20060321, end: 20060321
  2. FRAGMIN [Suspect]
     Indication: THROMBOSIS PROPHYLAXIS
     Dosage: 5000 I.U. (5000 I.U., 1 IN 1 D), SUBCUTANEOUS; SEE IMAGE
     Route: 058
     Dates: start: 20060323, end: 20060325
  3. KETONAL (KETOPROFEN) [Concomitant]
  4. DIPIDOLOR (PIRITRAMIDE) [Concomitant]
  5. LENDACIN (CEFTRIAXONE) [Concomitant]
  6. CONTROLOC (PANTOPRAZOLE) [Concomitant]

REACTIONS (2)
  - POST PROCEDURAL COMPLICATION [None]
  - PULMONARY EMBOLISM [None]
